FAERS Safety Report 5251893-X (Version None)
Quarter: 2007Q1

REPORT INFORMATION
  Report Type: 
  Country: None (occurrence: None)
  Receive Date: 20070223
  Receipt Date: 20070220
  Transmission Date: 20070707
  Serious: Yes (Other)
  Sender: FDA-Public Use
  Company Number: PERIO-2007-0002

PATIENT
  Age: 24 Year
  Sex: Female
  Weight: 63 kg

DRUGS (2)
  1. PERIOSTAT [Suspect]
  2. MICROGYNON CONTRACEPTIVE [Concomitant]

REACTIONS (2)
  - DYSPEPSIA [None]
  - DYSPHAGIA [None]
